FAERS Safety Report 21789886 (Version 2)
Quarter: 2023Q2

REPORT INFORMATION
  Report Type: Spontaneous
  Country: IN (occurrence: IN)
  Receive Date: 20221228
  Receipt Date: 20230531
  Transmission Date: 20230722
  Serious: Yes (Other)
  Sender: FDA-Public Use
  Company Number: IN-PFIZER INC-202200751525

PATIENT
  Age: 50 Year
  Sex: Female
  Weight: 69.5 kg

DRUGS (10)
  1. PALBOCICLIB [Suspect]
     Active Substance: PALBOCICLIB
     Dosage: 125 MG, 1X/DAY
     Route: 048
     Dates: start: 20220409
  2. PALBOCICLIB [Suspect]
     Active Substance: PALBOCICLIB
     Dosage: 125 MG, 1X/DAY
     Route: 048
     Dates: start: 20220414
  3. ZOLEDRONIC ACID [Concomitant]
     Active Substance: ZOLEDRONIC ACID
     Dosage: 4 MG
     Route: 042
     Dates: start: 20220511
  4. LETROZOLE [Concomitant]
     Active Substance: LETROZOLE
     Dosage: 2.5 MG, 1X/DAY
  5. EZORB FORTE [Concomitant]
     Dosage: UNK, 1X/DAY
  6. BEMINAL FORTE [Concomitant]
     Dosage: UNK, 1X/DAY
  7. D3 SURE [Concomitant]
     Dosage: 5 ML, MONTHLY
  8. IRON [Concomitant]
     Active Substance: IRON
     Dosage: UNK, 1X/DAY
  9. DOLO 650 [Concomitant]
     Dosage: 650 MG, AS NEEDED
  10. ALEX+ SF [Concomitant]
     Dosage: TEASPOONFUL, 3X/DAY

REACTIONS (10)
  - Platelet count decreased [Unknown]
  - Cholecystitis chronic [Unknown]
  - Blood uric acid increased [Unknown]
  - C-reactive protein increased [Unknown]
  - Haemoglobin decreased [Unknown]
  - Mean cell volume increased [Unknown]
  - Mean cell haemoglobin concentration decreased [Unknown]
  - Neoplasm progression [Unknown]
  - Lymph gland infection [Unknown]
  - Lymphadenitis [Unknown]

NARRATIVE: CASE EVENT DATE: 20220511
